FAERS Safety Report 21098013 (Version 4)
Quarter: 2022Q4

REPORT INFORMATION
  Report Type: Report from Study
  Country: US (occurrence: US)
  Receive Date: 20220719
  Receipt Date: 20221006
  Transmission Date: 20230113
  Serious: Yes (Hospitalization, Other)
  Sender: FDA-Public Use
  Company Number: US-TAKEDA-2022TUS038264

PATIENT
  Age: 57 Year
  Sex: Female

DRUGS (20)
  1. TEDUGLUTIDE [Suspect]
     Active Substance: TEDUGLUTIDE
     Indication: Short-bowel syndrome
     Dosage: 2.34 MILLIGRAM, QD
     Route: 058
     Dates: start: 20220510
  2. TEDUGLUTIDE [Suspect]
     Active Substance: TEDUGLUTIDE
     Indication: Short-bowel syndrome
     Dosage: 2.34 MILLIGRAM, QD
     Route: 058
     Dates: start: 20220510
  3. TEDUGLUTIDE [Suspect]
     Active Substance: TEDUGLUTIDE
     Indication: Short-bowel syndrome
     Dosage: 2.34 MILLIGRAM, QD
     Route: 058
     Dates: start: 20220510
  4. TEDUGLUTIDE [Suspect]
     Active Substance: TEDUGLUTIDE
     Indication: Short-bowel syndrome
     Dosage: 2.34 MILLIGRAM, QD
     Route: 058
     Dates: start: 20220510
  5. TEDUGLUTIDE [Suspect]
     Active Substance: TEDUGLUTIDE
     Dosage: 2.34 MILLIGRAM, QD
     Route: 058
     Dates: start: 20220510
  6. TEDUGLUTIDE [Suspect]
     Active Substance: TEDUGLUTIDE
     Dosage: 2.34 MILLIGRAM, QD
     Route: 058
     Dates: start: 20220510
  7. TEDUGLUTIDE [Suspect]
     Active Substance: TEDUGLUTIDE
     Dosage: 2.34 MILLIGRAM, QD
     Route: 058
     Dates: start: 20220510
  8. TEDUGLUTIDE [Suspect]
     Active Substance: TEDUGLUTIDE
     Dosage: 2.34 MILLIGRAM, QD
     Route: 058
     Dates: start: 20220510
  9. TEDUGLUTIDE [Suspect]
     Active Substance: TEDUGLUTIDE
     Dosage: 2.34 MILLIGRAM, QD
     Route: 058
     Dates: start: 20220511
  10. TEDUGLUTIDE [Suspect]
     Active Substance: TEDUGLUTIDE
     Dosage: 2.34 MILLIGRAM, QD
     Route: 058
     Dates: start: 20220511
  11. TEDUGLUTIDE [Suspect]
     Active Substance: TEDUGLUTIDE
     Dosage: 2.34 MILLIGRAM, QD
     Route: 058
     Dates: start: 20220511
  12. TEDUGLUTIDE [Suspect]
     Active Substance: TEDUGLUTIDE
     Dosage: 2.34 MILLIGRAM, QD
     Route: 058
     Dates: start: 20220511
  13. TEDUGLUTIDE [Suspect]
     Active Substance: TEDUGLUTIDE
     Dosage: 2.34 MILLIGRAM, QD
     Route: 058
  14. TEDUGLUTIDE [Suspect]
     Active Substance: TEDUGLUTIDE
     Dosage: 2.34 MILLIGRAM, QD
     Route: 058
  15. TEDUGLUTIDE [Suspect]
     Active Substance: TEDUGLUTIDE
     Dosage: 2.34 MILLIGRAM, QD
     Route: 058
  16. TEDUGLUTIDE [Suspect]
     Active Substance: TEDUGLUTIDE
     Dosage: 2.34 MILLIGRAM, QD
     Route: 058
  17. TEDUGLUTIDE [Suspect]
     Active Substance: TEDUGLUTIDE
     Dosage: 2.34 MILLIGRAM, QD
     Route: 058
     Dates: start: 202205
  18. TEDUGLUTIDE [Suspect]
     Active Substance: TEDUGLUTIDE
     Dosage: 2.34 MILLIGRAM, QD
     Route: 058
     Dates: start: 202205
  19. TEDUGLUTIDE [Suspect]
     Active Substance: TEDUGLUTIDE
     Dosage: 2.34 MILLIGRAM, QD
     Route: 058
     Dates: start: 202205
  20. TEDUGLUTIDE [Suspect]
     Active Substance: TEDUGLUTIDE
     Dosage: 2.34 MILLIGRAM, QD
     Route: 058
     Dates: start: 202205

REACTIONS (11)
  - Cardiac disorder [Unknown]
  - White blood cell count increased [Unknown]
  - Abscess drainage [Unknown]
  - Sepsis [Unknown]
  - Cholecystitis infective [Unknown]
  - Surgery [Unknown]
  - Blister [Unknown]
  - Somnolence [Unknown]
  - Rash [Unknown]
  - Hypersomnia [Unknown]
  - Therapy interrupted [Unknown]

NARRATIVE: CASE EVENT DATE: 20220711
